FAERS Safety Report 9669289 (Version 2)
Quarter: 2014Q1

REPORT INFORMATION
  Report Type: Spontaneous
  Country: NL (occurrence: NL)
  Receive Date: 20131105
  Receipt Date: 20140123
  Transmission Date: 20141002
  Serious: Yes (Hospitalization)
  Sender: FDA-Public Use
  Company Number: NL-NOVOPROD-390879

PATIENT
  Age: 60 Year
  Sex: Male
  Weight: 97 kg

DRUGS (12)
  1. NOVOMIX 30 FLEXPEN [Suspect]
     Indication: TYPE 2 DIABETES MELLITUS
     Dosage: 26 IU, BID
     Route: 058
  2. NOVOMIX 30 FLEXPEN [Suspect]
     Route: 065
  3. NOVORAPID FLEXPEN [Suspect]
     Indication: TYPE 2 DIABETES MELLITUS
     Dosage: 22 IU, TID
     Route: 065
  4. EPLERENONE [Concomitant]
     Dosage: 25 MG, SINGLE
     Route: 048
  5. ATORVASTATIN [Concomitant]
     Dosage: 10 MG, SINGLE
     Route: 048
  6. CANDESARTAN CILEXETIL [Concomitant]
     Dosage: 4 MG, SINGLE
     Route: 048
  7. DIGOXIN [Concomitant]
     Dosage: 0.13 MG, SINGLE
     Route: 048
  8. BISOPROLOL [Concomitant]
     Dosage: 25 MG, TID
     Route: 048
  9. BUMETANIDE [Concomitant]
     Dosage: 5 MG, TID
     Route: 048
  10. PANTOZOL                           /01263204/ [Concomitant]
     Dosage: UNK
     Route: 048
  11. PREDNISOLON                        /00016201/ [Concomitant]
     Dosage: 5 MG, TID
     Route: 048
  12. LANTUS [Concomitant]
     Dosage: 30 IU, SINGLE
     Route: 058

REACTIONS (1)
  - Oedema [Not Recovered/Not Resolved]
